FAERS Safety Report 9265211 (Version 7)
Quarter: 2015Q2

REPORT INFORMATION
  Report Type: Spontaneous
  Country: US (occurrence: US)
  Receive Date: 20130501
  Receipt Date: 20150421
  Transmission Date: 20150821
  Serious: Yes (Disabling)
  Sender: FDA-Public Use
  Company Number: US-009507513-1304USA016956

PATIENT
  Sex: Male

DRUGS (3)
  1. PROPECIA [Suspect]
     Active Substance: FINASTERIDE
     Dosage: 1 MG QD
     Route: 048
     Dates: start: 20091105, end: 201004
  2. PROPECIA [Suspect]
     Active Substance: FINASTERIDE
     Indication: ALOPECIA
     Dosage: 1 MG, QD
     Route: 048
     Dates: start: 200607, end: 20070327
  3. FINASTERIDE. [Suspect]
     Active Substance: FINASTERIDE
     Indication: ALOPECIA
     Dosage: 2.5 MG, QD
     Route: 048
     Dates: start: 20110201, end: 20110924

REACTIONS (40)
  - Meniscus injury [Unknown]
  - Blood creatine phosphokinase increased [Not Recovered/Not Resolved]
  - Lipids increased [Unknown]
  - Malaise [Unknown]
  - Intervertebral disc degeneration [Unknown]
  - Wisdom teeth removal [Unknown]
  - Erythema [Unknown]
  - Libido decreased [Unknown]
  - Muscle atrophy [Unknown]
  - Myalgia [Unknown]
  - Foot fracture [Unknown]
  - Rash [Unknown]
  - Asthenia [Recovering/Resolving]
  - Sexual dysfunction [Not Recovered/Not Resolved]
  - Hot flush [Unknown]
  - Knee operation [Unknown]
  - Varicose vein operation [Unknown]
  - Limb operation [Unknown]
  - Hypogonadism [Unknown]
  - Musculoskeletal chest pain [Recovering/Resolving]
  - Musculoskeletal pain [Unknown]
  - Libido decreased [Unknown]
  - Wrong technique in drug usage process [Unknown]
  - Ankle fracture [Unknown]
  - Fatigue [Unknown]
  - Hypothyroidism [Unknown]
  - Elbow operation [Unknown]
  - Liver function test abnormal [Unknown]
  - Meniscus operation [Unknown]
  - Varicocele repair [Unknown]
  - Drug dependence [Unknown]
  - Pruritus [Unknown]
  - Muscular weakness [Unknown]
  - Erectile dysfunction [Not Recovered/Not Resolved]
  - Muscle fatigue [Unknown]
  - Nephrolithiasis [Unknown]
  - Hepatic enzyme increased [Unknown]
  - Nerve block [Unknown]
  - Asthenia [Recovering/Resolving]
  - Inguinal hernia repair [Unknown]

NARRATIVE: CASE EVENT DATE: 20070314
